FAERS Safety Report 9301445 (Version 1)
Quarter: 2013Q2

REPORT INFORMATION
  Report Type: Spontaneous
  Country: US (occurrence: None)
  Receive Date: 20130520
  Receipt Date: 20130520
  Transmission Date: 20140414
  Serious: Yes (Life-Threatening)
  Sender: FDA-Public Use
  Company Number: None

PATIENT
  Age: 61 Year
  Sex: Male

DRUGS (1)
  1. EXJADE 500MG NOVARTIS [Suspect]
     Route: 048
     Dates: start: 20120703, end: 20130415

REACTIONS (7)
  - Graft versus host disease [None]
  - Blood bilirubin increased [None]
  - Liver disorder [None]
  - Renal failure [None]
  - Platelet count decreased [None]
  - Antibody test positive [None]
  - Malaise [None]
